FAERS Safety Report 5406665-X (Version None)
Quarter: 2007Q3

REPORT INFORMATION
  Report Type: 
  Country: None (occurrence: None)
  Receive Date: 20070806
  Receipt Date: 20070731
  Transmission Date: 20080115
  Serious: Yes (Other)
  Sender: FDA-Public Use
  Company Number: ES-PFIZER INC-2007063891

PATIENT
  Age: 56 Year
  Sex: Male

DRUGS (7)
  1. PREGABALIN [Suspect]
     Indication: NEURALGIA
     Route: 048
     Dates: start: 20070727, end: 20070730
  2. NOVONORM [Concomitant]
  3. AMERIDE [Concomitant]
  4. TENORMIN [Concomitant]
  5. ADIRO [Concomitant]
  6. OMEPRAZOLE [Concomitant]
  7. DIEMIL [Concomitant]

REACTIONS (11)
  - ANOREXIA [None]
  - DEPRESSION [None]
  - DRY EYE [None]
  - DYSPHONIA [None]
  - FACIAL PALSY [None]
  - HYPERHIDROSIS [None]
  - RESTLESSNESS [None]
  - SOMNOLENCE [None]
  - TACHYCARDIA [None]
  - URINARY INCONTINENCE [None]
  - WEIGHT DECREASED [None]
